FAERS Safety Report 9385767 (Version 3)
Quarter: 2014Q2

REPORT INFORMATION
  Report Type: Report from Study
  Country: US (occurrence: US)
  Receive Date: 20130705
  Receipt Date: 20140505
  Transmission Date: 20141212
  Serious: No
  Sender: FDA-Public Use
  Company Number: PHEH2012US013203

PATIENT
  Age: 38 Year
  Sex: Male
  Weight: 61.22 kg

DRUGS (4)
  1. TASIGNA [Suspect]
     Indication: ACUTE MYELOID LEUKAEMIA (IN REMISSION)
     Dosage: 2 DF (2 CAPSULES), BID
     Route: 048
     Dates: start: 20120608
  2. MULTIVITAMINS [Concomitant]
     Dosage: UNK UKN, UNK
  3. FOLIC ACID [Concomitant]
     Dosage: 5 MG, UNK
  4. PROGRAF [Concomitant]
     Dosage: 5 MG, UNK

REACTIONS (8)
  - Dizziness [Unknown]
  - Abdominal pain [Recovered/Resolved]
  - Pain in extremity [Recovered/Resolved]
  - Weight decreased [Unknown]
  - Rash [Unknown]
  - Arthralgia [Unknown]
  - Chest pain [Unknown]
  - Decreased appetite [Unknown]
